FAERS Safety Report 5825037-7 (Version None)
Quarter: 2008Q3

REPORT INFORMATION
  Report Type: 
  Country: None (occurrence: None)
  Receive Date: 20080725
  Receipt Date: 20080725
  Transmission Date: 20090109
  Serious: Yes (Death, Life-Threatening)
  Sender: FDA-Public Use
  Company Number: None

PATIENT
  Sex: Male
  Weight: 99.7913 kg

DRUGS (1)
  1. HALOPERIDOL (HALDOL) [Suspect]
     Indication: SEDATION
     Dosage: 5 MG ONCE IV
     Route: 042
     Dates: start: 20080217

REACTIONS (5)
  - CARDIO-RESPIRATORY ARREST [None]
  - CYANOSIS [None]
  - INCORRECT ROUTE OF DRUG ADMINISTRATION [None]
  - MEDICATION ERROR [None]
  - SUDDEN DEATH [None]
